FAERS Safety Report 4967472-5 (Version None)
Quarter: 2006Q2

REPORT INFORMATION
  Report Type: 
  Country: None (occurrence: None)
  Receive Date: 20060404
  Receipt Date: 20060331
  Transmission Date: 20061013
  Serious: Yes (Death, Hospitalization)
  Sender: FDA-Public Use
  Company Number: HQWYE600031MAR06

PATIENT
  Age: 61 Year
  Sex: Female

DRUGS (1)
  1. PROPRANOLOL HYDROCHLORIDE [Suspect]
     Indication: DRUG USE FOR UNKNOWN INDICATION
     Dosage: 60 MG 1X PER 1 DAY ORAL
     Route: 048
     Dates: start: 20050217, end: 20050311

REACTIONS (2)
  - BRADYCARDIA [None]
  - SYNCOPE [None]
